FAERS Safety Report 6449877-9 (Version None)
Quarter: 2009Q4

REPORT INFORMATION
  Report Type: 
  Country: None (occurrence: None)
  Receive Date: 20091123
  Receipt Date: 20091112
  Transmission Date: 20100525
  Serious: Yes (Hospitalization)
  Sender: FDA-Public Use
  Company Number: US-BIOGENIDEC-2009BI030951

PATIENT
  Age: 63 Year
  Sex: Female

DRUGS (1)
  1. AVONEX [Suspect]
     Indication: MULTIPLE SCLEROSIS
     Route: 030
     Dates: start: 20080801, end: 20090801

REACTIONS (7)
  - ASTHENIA [None]
  - COUGH [None]
  - DEHYDRATION [None]
  - DYSPHAGIA [None]
  - MULTIPLE SCLEROSIS [None]
  - SYNCOPE [None]
  - URINARY TRACT INFECTION [None]
